FAERS Safety Report 24857770 (Version 3)
Quarter: 2025Q1

REPORT INFORMATION
  Report Type: Report from Study
  Country: KR (occurrence: KR)
  Receive Date: 20250117
  Receipt Date: 20250212
  Transmission Date: 20250409
  Serious: Yes (Hospitalization, Other)
  Sender: NOVARTIS
  Company Number: KR-002147023-NVSC2024KR229252

PATIENT
  Age: 91 Year
  Sex: Male
  Weight: 67 kg

DRUGS (28)
  1. BEOVU [Suspect]
     Active Substance: BROLUCIZUMAB-DBLL
     Indication: Neovascular age-related macular degeneration
     Route: 031
     Dates: start: 20230825, end: 20230825
  2. BEOVU [Suspect]
     Active Substance: BROLUCIZUMAB-DBLL
     Route: 031
     Dates: start: 20231222, end: 20231222
  3. MOXISTA [Concomitant]
     Indication: Evidence based treatment
     Dosage: 1 DRP, TID
     Route: 047
     Dates: start: 20230825, end: 20230828
  4. MOXISTA [Concomitant]
     Indication: Prophylaxis
     Dosage: 1 DRP, TID
     Route: 047
     Dates: start: 20231222, end: 20231225
  5. BROMFENAC SODIUM [Concomitant]
     Active Substance: BROMFENAC SODIUM
     Indication: Evidence based treatment
     Dosage: 1 DRP, TID (OPHTHALMIC SOLUTIONS)
     Route: 047
     Dates: start: 20230825, end: 20230828
  6. BROMFENAC SODIUM [Concomitant]
     Active Substance: BROMFENAC SODIUM
     Indication: Prophylaxis
     Dosage: 1 DRP, TID (OPHTHALMIC SOLUTIONS)
     Route: 047
     Dates: start: 20231222, end: 20231222
  7. CUALONE [Concomitant]
     Indication: Dry eye
     Route: 065
     Dates: start: 20230925
  8. Tropherin [Concomitant]
     Indication: Prophylaxis
     Route: 065
     Dates: start: 20230825, end: 20230825
  9. Tropherin [Concomitant]
     Route: 065
     Dates: start: 20230925, end: 20230925
  10. Tropherin [Concomitant]
     Route: 065
     Dates: start: 20231030, end: 20231030
  11. Tropherin [Concomitant]
     Route: 065
     Dates: start: 20231222, end: 20231222
  12. Tropherin [Concomitant]
     Route: 065
     Dates: start: 20240223, end: 20240223
  13. Tropherin [Concomitant]
     Route: 065
     Dates: start: 20240524, end: 20240524
  14. NICORANDIL [Concomitant]
     Active Substance: NICORANDIL
     Indication: Angina pectoris
     Route: 048
     Dates: start: 20230321
  15. LEVOFLOXACIN [Concomitant]
     Active Substance: LEVOFLOXACIN
     Indication: Cataract operation
     Route: 065
     Dates: start: 20231129, end: 20231225
  16. LEVOFLOXACIN [Concomitant]
     Active Substance: LEVOFLOXACIN
     Indication: Prophylaxis
  17. Jeil lidocaine [Concomitant]
     Indication: Bronchoscopy
     Route: 065
     Dates: start: 20231006, end: 20231006
  18. Jeil lidocaine [Concomitant]
     Route: 065
     Dates: start: 20231012, end: 20231012
  19. PLAVIX [Concomitant]
     Active Substance: CLOPIDOGREL BISULFATE
     Indication: Dyslipidaemia
     Route: 048
     Dates: start: 20151008
  20. LIPINON [Concomitant]
     Indication: Dyslipidaemia
     Route: 048
     Dates: start: 20200728
  21. ACUVAIL [Concomitant]
     Active Substance: KETOROLAC TROMETHAMINE
     Indication: Cataract operation
     Route: 065
     Dates: start: 20231129, end: 20231225
  22. ACUVAIL [Concomitant]
     Active Substance: KETOROLAC TROMETHAMINE
     Indication: Prophylaxis
  23. CEPOXETIL [Concomitant]
     Indication: Pyrexia
     Route: 065
     Dates: start: 20230928, end: 20231002
  24. GASTER [Concomitant]
     Active Substance: FAMOTIDINE
     Indication: Pyrexia
     Route: 065
     Dates: start: 20230928, end: 20231002
  25. PARACAINE [Concomitant]
     Active Substance: PROPARACAINE HYDROCHLORIDE
     Indication: Anaesthesia
     Route: 065
     Dates: start: 20230825, end: 20230825
  26. MOLSITON [Concomitant]
     Indication: Neoplasm malignant
     Route: 048
     Dates: start: 20240315
  27. MOLSITON [Concomitant]
     Indication: Angina pectoris
  28. TACENOL [Concomitant]
     Indication: Pyrexia
     Route: 065
     Dates: start: 20230928, end: 20231002

REACTIONS (3)
  - Chest pain [Recovered/Resolved]
  - Arterial injury [Unknown]
  - Urinary incontinence [Not Recovered/Not Resolved]

NARRATIVE: CASE EVENT DATE: 20240101
